FAERS Safety Report 21527109 (Version 2)
Quarter: 2022Q4

REPORT INFORMATION
  Report Type: Spontaneous
  Country: US (occurrence: US)
  Receive Date: 20221031
  Receipt Date: 20221116
  Transmission Date: 20230112
  Serious: No
  Sender: FDA-Public Use
  Company Number: US-LUPIN PHARMACEUTICALS INC.-2022-12354

PATIENT

DRUGS (3)
  1. LISINOPRIL [Suspect]
     Active Substance: LISINOPRIL
     Indication: Blood pressure abnormal
     Dosage: 10 MG, TWO TABLETS BID
     Route: 048
  2. PRAVASTATIN SODIUM [Suspect]
     Active Substance: PRAVASTATIN SODIUM
     Indication: Diabetes mellitus
     Dosage: UNK UNK, QD
     Route: 065
  3. METFORMIN [Concomitant]
     Active Substance: METFORMIN HYDROCHLORIDE
     Indication: Diabetes mellitus
     Dosage: UNK UNK, QD
     Route: 065

REACTIONS (3)
  - Off label use [Unknown]
  - Recalled product administered [Unknown]
  - Product contamination physical [Unknown]
